FAERS Safety Report 13265553 (Version 2)
Quarter: 2017Q3

REPORT INFORMATION
  Report Type: Spontaneous
  Country: US (occurrence: US)
  Receive Date: 20170223
  Receipt Date: 20170706
  Transmission Date: 20171127
  Serious: No
  Sender: FDA-Public Use
  Company Number: US-B.I. PHARMACEUTICALS,INC./RIDGEFIELD-2017-BI-009041

PATIENT
  Age: 76 Year
  Sex: Female

DRUGS (4)
  1. GALVISCON [Concomitant]
     Indication: GASTROOESOPHAGEAL REFLUX DISEASE
     Dosage: AS NEEDED;
     Route: 048
  2. ASMANEX [Concomitant]
     Active Substance: MOMETASONE FUROATE
     Indication: ASTHMA
     Dosage: 2 TIMES PER DAY QD;
     Route: 055
     Dates: start: 2011
  3. COMBIVENT [Suspect]
     Active Substance: ALBUTEROL SULFATE\IPRATROPIUM BROMIDE
     Indication: BRONCHITIS CHRONIC
     Dosage: 1 INHALATION 4 TIMES PER DAY AS NEEDED;  FORM STRENGTH: 20 MCG / 100 MCG; FORMULATION: INHALATION SP
     Route: 055
     Dates: start: 2011
  4. TUMS [Concomitant]
     Active Substance: CALCIUM CARBONATE
     Indication: GASTROOESOPHAGEAL REFLUX DISEASE
     Dosage: AS NEEDED;
     Route: 048

REACTIONS (6)
  - Device defective [Unknown]
  - Syncope [Recovered/Resolved]
  - Asthma [Unknown]
  - Cough [Recovered/Resolved]
  - Paraesthesia [Recovered/Resolved]
  - Device issue [Unknown]

NARRATIVE: CASE EVENT DATE: 20170213
